FAERS Safety Report 22387542 (Version 1)
Quarter: 2023Q2

REPORT INFORMATION
  Report Type: Report from Study
  Country: CN (occurrence: None)
  Receive Date: 20230531
  Receipt Date: 20230531
  Transmission Date: 20230722
  Serious: Yes (Hospitalization)
  Sender: FDA-Public Use
  Company Number: CN-ROCHE-3357439

PATIENT
  Age: 54 Year
  Sex: Male
  Weight: 66 kg

DRUGS (20)
  1. BEVACIZUMAB [Suspect]
     Active Substance: BEVACIZUMAB
     Indication: Non-small cell lung cancer metastatic
     Route: 041
     Dates: start: 20221028, end: 20221028
  2. BEVACIZUMAB [Suspect]
     Active Substance: BEVACIZUMAB
     Route: 041
     Dates: start: 20221118, end: 20221118
  3. BEVACIZUMAB [Suspect]
     Active Substance: BEVACIZUMAB
     Route: 041
     Dates: start: 20221213, end: 20221213
  4. BEVACIZUMAB [Suspect]
     Active Substance: BEVACIZUMAB
     Route: 041
     Dates: start: 20230201, end: 20230201
  5. BEVACIZUMAB [Suspect]
     Active Substance: BEVACIZUMAB
     Route: 041
     Dates: start: 20230317, end: 20230317
  6. BEVACIZUMAB [Suspect]
     Active Substance: BEVACIZUMAB
     Route: 041
     Dates: start: 20230323, end: 20230323
  7. BEVACIZUMAB [Suspect]
     Active Substance: BEVACIZUMAB
     Route: 041
     Dates: start: 20230414, end: 20230414
  8. PACLITAXEL [Suspect]
     Active Substance: PACLITAXEL
     Indication: Non-small cell lung cancer metastatic
     Dosage: 5 ML: 30 MG
     Route: 041
     Dates: start: 20221028
  9. PACLITAXEL [Suspect]
     Active Substance: PACLITAXEL
     Dosage: 5 ML: 30 MG
     Route: 041
     Dates: start: 20221118, end: 20221118
  10. PACLITAXEL [Suspect]
     Active Substance: PACLITAXEL
     Dosage: 5 ML: 30 MG
     Route: 041
     Dates: start: 20221213, end: 20221213
  11. PACLITAXEL [Suspect]
     Active Substance: PACLITAXEL
     Dosage: 5 ML: 30 MG
     Route: 041
     Dates: start: 20230201, end: 20230201
  12. CARBOPLATIN [Suspect]
     Active Substance: CARBOPLATIN
     Indication: Non-small cell lung cancer metastatic
     Dosage: 10 ML: 100 MG
     Route: 041
     Dates: start: 20221028, end: 20221028
  13. CARBOPLATIN [Suspect]
     Active Substance: CARBOPLATIN
     Dosage: 10 ML: 100 MG
     Route: 041
     Dates: start: 20221118, end: 20221118
  14. CARBOPLATIN [Suspect]
     Active Substance: CARBOPLATIN
     Dosage: 10 ML: 100 MG
     Route: 041
     Dates: start: 20230201, end: 20230201
  15. CARBOPLATIN [Suspect]
     Active Substance: CARBOPLATIN
     Dosage: 10 ML: 100 MG
     Route: 041
     Dates: start: 20230211, end: 20230211
  16. BETAHISTINE MESILATE [Concomitant]
     Active Substance: BETAHISTINE MESILATE
     Route: 048
     Dates: start: 20220903, end: 20220911
  17. OMEPRAZOLE [Concomitant]
     Active Substance: OMEPRAZOLE
     Indication: Hiccups
     Route: 048
     Dates: start: 20221101, end: 20221105
  18. CEFUROXIME AXETIL [Concomitant]
     Active Substance: CEFUROXIME AXETIL
     Indication: Toothache
     Route: 048
     Dates: start: 20221208, end: 20221218
  19. PEGYLATED RECOMBINANT HUMAN GRANULOCYTE STIMULATING FACTOR INJECTION ( [Concomitant]
     Indication: White blood cell count decreased
     Route: 058
     Dates: start: 20221215, end: 20221215
  20. PEGYLATED RECOMBINANT HUMAN GRANULOCYTE STIMULATING FACTOR INJECTION ( [Concomitant]
     Route: 058
     Dates: start: 20221221, end: 20221221

REACTIONS (1)
  - Pancreatitis acute [Recovering/Resolving]

NARRATIVE: CASE EVENT DATE: 20230419
